FAERS Safety Report 5704661-6 (Version None)
Quarter: 2008Q2

REPORT INFORMATION
  Report Type: 
  Country: None (occurrence: None)
  Receive Date: 20080414
  Receipt Date: 20080402
  Transmission Date: 20081010
  Serious: Yes (Hospitalization)
  Sender: FDA-Public Use
  Company Number: FR-WYE-H03582208

PATIENT
  Sex: Female

DRUGS (5)
  1. CORDARONE [Suspect]
     Route: 048
  2. LASILIX [Concomitant]
     Route: 048
  3. VASTAREL [Concomitant]
     Route: 048
     Dates: end: 20071015
  4. PREVISCAN [Suspect]
     Route: 048
     Dates: end: 20071016
  5. AMLOR [Concomitant]
     Route: 048
     Dates: end: 20071015

REACTIONS (1)
  - INTRA-ABDOMINAL HAEMATOMA [None]
